FAERS Safety Report 17883780 (Version 2)
Quarter: 2022Q2

REPORT INFORMATION
  Report Type: Report from Study
  Country: DE (occurrence: DE)
  Receive Date: 20200611
  Receipt Date: 20220411
  Transmission Date: 20220720
  Serious: Yes (Death, Life-Threatening, Hospitalization, Other)
  Sender: FDA-Public Use
  Company Number: DE-ARISTO PHARMA-METF202005201

PATIENT
  Age: 80 Year
  Sex: Female

DRUGS (1)
  1. METFORMIN [Suspect]
     Active Substance: METFORMIN HYDROCHLORIDE
     Indication: Type 2 diabetes mellitus
     Dosage: UNK
     Route: 065

REACTIONS (8)
  - Pneumonia [Fatal]
  - Toxicity to various agents [Fatal]
  - Multiple organ dysfunction syndrome [Fatal]
  - Lactic acidosis [Fatal]
  - Hypoglycaemia [Unknown]
  - Acute kidney injury [Unknown]
  - Loss of consciousness [Unknown]
  - Inflammation [Unknown]
